FAERS Safety Report 21358705 (Version 1)
Quarter: 2022Q3

REPORT INFORMATION
  Report Type: Spontaneous
  Country: US (occurrence: US)
  Receive Date: 20220921
  Receipt Date: 20220921
  Transmission Date: 20221027
  Serious: Yes (Hospitalization, Other)
  Sender: FDA-Public Use
  Company Number: US-ASTELLAS-2022US028700

PATIENT
  Age: 65 Year
  Sex: Male

DRUGS (25)
  1. MYRBETRIQ [Suspect]
     Active Substance: MIRABEGRON
     Indication: Incontinence
     Route: 048
     Dates: start: 20151209, end: 20220621
  2. IRON [Concomitant]
     Active Substance: IRON
     Indication: Anaemia
     Dosage: UNK UNK, ONCE DAILY (AM)
     Route: 065
     Dates: start: 201702
  3. D [Concomitant]
     Indication: Product used for unknown indication
     Dosage: 2 DF, ONCE DAILY (AM)
     Route: 065
     Dates: start: 20150801
  4. PROBIOTICS NOS [Concomitant]
     Active Substance: PROBIOTICS NOS
     Indication: Functional gastrointestinal disorder
     Dosage: UNK UNK, ONCE DAILY (AM)
     Route: 065
     Dates: start: 20120816
  5. GARLIC [Concomitant]
     Active Substance: GARLIC
     Indication: Functional gastrointestinal disorder
     Dosage: 500 MG, ONCE DAILY (AM)
     Route: 065
  6. LUTEIN [Concomitant]
     Active Substance: LUTEIN
     Indication: Eye disorder
     Dosage: 20-25 MG, ONCE DAILY
     Route: 065
     Dates: start: 20110712
  7. VITAMIN C [Concomitant]
     Active Substance: ASCORBIC ACID
     Indication: Immune system disorder
     Dosage: 500 MG, ONCE DAILY (AM)
     Route: 065
  8. METAMUCIL [Concomitant]
     Active Substance: PLANTAGO SEED
     Indication: Constipation
     Dosage: UNK UNK, ONCE DAILY (AM)
     Route: 065
     Dates: start: 20120825
  9. VITAMIN B-COMPLEX [Concomitant]
     Active Substance: DEXPANTHENOL\NIACINAMIDE\PYRIDOXINE HYDROCHLORIDE\RIBOFLAVIN 5^-PHOSPHATE SODIUM\THIAMINE HYDROCHLOR
     Indication: Neuropathy peripheral
     Dosage: UNK UNK, ONCE DAILY (AM)
     Route: 065
     Dates: start: 201702
  10. VITAMIN B-COMPLEX [Concomitant]
     Active Substance: DEXPANTHENOL\NIACINAMIDE\PYRIDOXINE HYDROCHLORIDE\RIBOFLAVIN 5^-PHOSPHATE SODIUM\THIAMINE HYDROCHLOR
     Indication: Myopathy
  11. D-MANNOSE [Concomitant]
     Indication: Urinary tract disorder
     Dosage: UNK UNK, THRICE DAILY
     Route: 065
     Dates: start: 2013
  12. CAL MAG ZINC [Concomitant]
     Indication: Product used for unknown indication
     Dosage: 1000 MG, ONCE DAILY (PM)
     Route: 065
     Dates: start: 20120711
  13. FISH OIL [Concomitant]
     Active Substance: FISH OIL
     Indication: Functional gastrointestinal disorder
     Dosage: UNK UNK, ONCE DAILY (AM)
     Route: 065
  14. TESTOSTERONE [Concomitant]
     Active Substance: TESTOSTERONE
     Indication: Product used for unknown indication
     Dosage: 50MG/5GR GEL, ONCE DAILY
     Route: 065
  15. SYNTHROID [Concomitant]
     Active Substance: LEVOTHYROXINE SODIUM
     Indication: Thyroid disorder
     Dosage: UNK UNK, UNKNOWN FREQ.
     Route: 065
  16. SYNTHROID [Concomitant]
     Active Substance: LEVOTHYROXINE SODIUM
     Dosage: 150 MG, ONCE DAILY (AM)
     Route: 065
  17. LOSARTAN [Concomitant]
     Active Substance: LOSARTAN
     Indication: Hypertension
     Route: 065
  18. FLOMAX [Concomitant]
     Active Substance: TAMSULOSIN HYDROCHLORIDE
     Indication: Prostatic disorder
     Dosage: 0.8 MG, ONCE DAILY (BEDTIME)
     Route: 065
  19. DESMOPRESSIN [Concomitant]
     Active Substance: DESMOPRESSIN
     Indication: Diabetes insipidus
     Route: 065
     Dates: start: 20170107
  20. DESMOPRESSIN [Concomitant]
     Active Substance: DESMOPRESSIN
     Indication: Hypopituitarism
  21. WELLBUTRIN [Concomitant]
     Active Substance: BUPROPION HYDROCHLORIDE
     Indication: Product used for unknown indication
     Dosage: 150 MG, ONCE DAILY (AM)
     Route: 065
     Dates: start: 20171212
  22. CORTEF [Concomitant]
     Active Substance: HYDROCORTISONE
     Indication: Adrenal disorder
     Dosage: 7.5MG 1PM AND 5MG 6PM, TWICE DAILY
     Route: 065
  23. CORTEF [Concomitant]
     Active Substance: HYDROCORTISONE
     Indication: Hypopituitarism
  24. PROSCAR [Concomitant]
     Active Substance: FINASTERIDE
     Indication: Benign prostatic hyperplasia
     Dosage: 5 MG, ONCE DAILY (PM)
     Route: 065
     Dates: start: 20151209
  25. HUMATROPE [Concomitant]
     Active Substance: SOMATROPIN
     Indication: Blood growth hormone abnormal
     Dosage: 6 MG, ONCE DAILY (1 SHOT PM FRIG)
     Route: 065
     Dates: start: 20110209

REACTIONS (5)
  - Accident [Unknown]
  - Urinary retention [Recovered/Resolved]
  - Limb injury [Unknown]
  - Localised infection [Unknown]
  - Blood pressure increased [Unknown]

NARRATIVE: CASE EVENT DATE: 20170601
